FAERS Safety Report 6527639-1 (Version None)
Quarter: 2010Q1

REPORT INFORMATION
  Report Type: 
  Country: None (occurrence: None)
  Receive Date: 20100105
  Receipt Date: 20091230
  Transmission Date: 20100710
  Serious: Yes (Hospitalization, Other)
  Sender: FDA-Public Use
  Company Number: US-ABBOTT-09P-163-0600843-00

PATIENT
  Sex: Male
  Weight: 90.8 kg

DRUGS (3)
  1. HUMIRA [Suspect]
     Indication: RHEUMATOID ARTHRITIS
     Route: 058
     Dates: start: 20070720, end: 20070813
  2. HUMIRA [Suspect]
     Route: 058
     Dates: start: 20090311, end: 20090908
  3. ENBREL [Concomitant]
     Indication: RHEUMATOID ARTHRITIS
     Dates: start: 20070801, end: 20090201

REACTIONS (6)
  - ANAEMIA [None]
  - COLON CANCER [None]
  - KNEE ARTHROPLASTY [None]
  - METASTATIC NEOPLASM [None]
  - OCCULT BLOOD [None]
  - RETROPERITONEAL LYMPHADENOPATHY [None]
